FAERS Safety Report 9040991 (Version 1)
Quarter: 2013Q1

REPORT INFORMATION
  Report Type: Spontaneous
  Country: US (occurrence: None)
  Receive Date: 20130123
  Receipt Date: 20130123
  Transmission Date: 20140127
  Serious: Yes (Disabling, Other)
  Sender: FDA-Public Use
  Company Number: None

PATIENT
  Age: 52 Year
  Sex: Female
  Weight: 63.5 kg

DRUGS (1)
  1. LYRICA 120 MG [Suspect]
     Indication: FIBROMYALGIA
     Dosage: 120 MG  2 TIMES DAILY
     Dates: start: 201107, end: 201205

REACTIONS (3)
  - Amnesia [None]
  - Crying [None]
  - Depression [None]
